FAERS Safety Report 16435194 (Version 2)
Quarter: 2019Q3

REPORT INFORMATION
  Report Type: Spontaneous
  Country: US (occurrence: US)
  Receive Date: 20190614
  Receipt Date: 20190814
  Transmission Date: 20191004
  Serious: Yes (Other)
  Sender: FDA-Public Use
  Company Number: US-BAYER-2019-115358

PATIENT
  Age: 32 Year
  Sex: Female
  Weight: 78.1 kg

DRUGS (3)
  1. SENSORCAINE [BUPIVACAINE HYDROCHLORIDE] [Concomitant]
     Dosage: UNK
     Dates: start: 20190604
  2. IBUPROFEN. [Concomitant]
     Active Substance: IBUPROFEN
  3. KYLEENA [Suspect]
     Active Substance: LEVONORGESTREL
     Indication: CONTRACEPTION
     Dosage: 17.5 MCG/24HR, CONT
     Route: 015
     Dates: start: 20190604, end: 20190611

REACTIONS (2)
  - Device dislocation [Recovered/Resolved]
  - Procedural pain [None]

NARRATIVE: CASE EVENT DATE: 20190604
